FAERS Safety Report 7394494-X (Version None)
Quarter: 2011Q2

REPORT INFORMATION
  Report Type: 
  Country: None (occurrence: None)
  Receive Date: 20110405
  Receipt Date: 20110324
  Transmission Date: 20111010
  Serious: Yes (Other)
  Sender: FDA-Public Use
  Company Number: PHHY2011AU24417

PATIENT
  Sex: Male

DRUGS (1)
  1. COMTAN [Suspect]
     Dosage: UNK
     Route: 048

REACTIONS (2)
  - GASTROOESOPHAGEAL SPHINCTER INSUFFICIENCY [None]
  - OESOPHAGEAL HYPOMOTILITY [None]
